FAERS Safety Report 5699356-1 (Version None)
Quarter: 2008Q2

REPORT INFORMATION
  Report Type: 
  Country: None (occurrence: None)
  Receive Date: 20080404
  Receipt Date: 20080401
  Transmission Date: 20081010
  Serious: Yes (Hospitalization)
  Sender: FDA-Public Use
  Company Number: TCI2008A00768

PATIENT
  Age: 73 Year
  Sex: Female

DRUGS (4)
  1. PREVPAC [Suspect]
     Indication: DUODENAL ULCER
     Dosage: 1 CARD (0.5 CARD, 2 IN 1 D) PER ORAL
     Route: 048
     Dates: start: 20080206, end: 20080212
  2. PREVPAC [Suspect]
     Indication: HELICOBACTER PYLORI IDENTIFICATION TEST POSITIVE
     Dosage: 1 CARD (0.5 CARD, 2 IN 1 D) PER ORAL
     Route: 048
     Dates: start: 20080206, end: 20080212
  3. AMARYL [Suspect]
     Indication: TYPE 2 DIABETES MELLITUS
     Dosage: 2 MG (2 MG, 1 IN 1 D) PER ORAL : 2 MG (2 MG, 1 IN 1 D) PER ORAL
     Route: 048
     Dates: start: 20080205, end: 20080207
  4. AMARYL [Suspect]
     Indication: TYPE 2 DIABETES MELLITUS
     Dosage: 2 MG (2 MG, 1 IN 1 D) PER ORAL : 2 MG (2 MG, 1 IN 1 D) PER ORAL
     Route: 048
     Dates: start: 20080212

REACTIONS (3)
  - BLOOD GLUCOSE INCREASED [None]
  - DRUG INTERACTION [None]
  - HYPOGLYCAEMIA [None]
